FAERS Safety Report 9013399 (Version 3)
Quarter: 2013Q2

REPORT INFORMATION
  Report Type: Spontaneous
  Country: DK (occurrence: DK)
  Receive Date: 20130114
  Receipt Date: 20130521
  Transmission Date: 20140414
  Serious: Yes (Other)
  Sender: FDA-Public Use
  Company Number: DK-PFIZER INC-2012126887

PATIENT
  Age: 28 Year
  Sex: Female
  Weight: 59 kg

DRUGS (8)
  1. LAMOTRIGINE [Suspect]
     Indication: DEPRESSION
     Dosage: UNK
     Dates: start: 20110512
  2. EFEXOR DEPOT [Suspect]
     Indication: DEPRESSION
     Dosage: 375 MG DAILY
     Dates: start: 20100622
  3. METHOTREXATE SODIUM [Suspect]
     Indication: ARTHRITIS
     Dosage: 15 MG, WEEKLY
     Dates: start: 20110517
  4. AGOMELATINE [Suspect]
     Indication: DEPRESSION
     Dosage: UNK
     Dates: start: 20110324
  5. FOLIMET [Concomitant]
     Indication: PROPHYLAXIS
     Dosage: 5 MG, WEEKLY
  6. FOLIMET [Concomitant]
     Indication: ADVERSE DRUG REACTION
  7. ETHINYLESTRADIOL [Concomitant]
     Indication: PROPHYLAXIS
     Dosage: UNK
     Dates: start: 2000
  8. IBUPROFEN [Concomitant]
     Indication: BACK INJURY
     Dosage: 600 MG, AS NEEDED
     Dates: start: 200102

REACTIONS (11)
  - Libido decreased [Unknown]
  - Anorgasmia [Unknown]
  - Hyperhidrosis [Unknown]
  - Dyskinesia [Recovering/Resolving]
  - Tremor [Recovering/Resolving]
  - Amnesia [Recovering/Resolving]
  - Disturbance in attention [Recovering/Resolving]
  - Insomnia [Recovering/Resolving]
  - Nightmare [Recovering/Resolving]
  - Hot flush [Recovering/Resolving]
  - Anxiety [Recovering/Resolving]
